FAERS Safety Report 6741982-2 (Version None)
Quarter: 2010Q2

REPORT INFORMATION
  Report Type: 
  Country: None (occurrence: None)
  Receive Date: 20100526
  Receipt Date: 20100518
  Transmission Date: 20101027
  Serious: Yes (Other)
  Sender: FDA-Public Use
  Company Number: US-ASTRAZENECA-2010SE22935

PATIENT
  Age: 18 Year
  Sex: Female

DRUGS (4)
  1. SEROQUEL XR [Suspect]
     Indication: SCHIZOAFFECTIVE DISORDER
     Route: 048
  2. SEROQUEL XR [Suspect]
     Route: 048
  3. KEPPRA [Concomitant]
     Indication: CONVULSION
     Route: 048
  4. TRILEPTAL [Concomitant]
     Route: 048

REACTIONS (2)
  - CONVERSION DISORDER [None]
  - DRUG DOSE OMISSION [None]
